FAERS Safety Report 6390764-2 (Version None)
Quarter: 2009Q4

REPORT INFORMATION
  Report Type: 
  Country: None (occurrence: None)
  Receive Date: 20091001
  Receipt Date: 20090711
  Transmission Date: 20100525
  Serious: No
  Sender: FDA-Public Use
  Company Number: 1000007412

PATIENT
  Age: 72 Year
  Sex: Male

DRUGS (6)
  1. BYSTOLIC [Suspect]
     Indication: HYPERTENSION
     Dosage: 5 MG (5 MG, 1 IN 1 D), ORAL
     Route: 048
     Dates: start: 20090708
  2. TEKTURNA [Concomitant]
  3. CLONIDINE [Concomitant]
  4. VALIUM [Concomitant]
  5. BUSPAR [Concomitant]
  6. AMILORIDE HYDROCHLORIDE [Concomitant]

REACTIONS (3)
  - CHEST PAIN [None]
  - DIZZINESS [None]
  - HEADACHE [None]
